FAERS Safety Report 20224635 (Version 2)
Quarter: 2022Q1

REPORT INFORMATION
  Report Type: Report from Study
  Country: DE (occurrence: DE)
  Receive Date: 20211223
  Receipt Date: 20220105
  Transmission Date: 20220423
  Serious: Yes (Hospitalization)
  Sender: FDA-Public Use
  Company Number: DE-PFM-2021-11967

PATIENT
  Sex: Male

DRUGS (2)
  1. BRAFTOVI [Suspect]
     Active Substance: ENCORAFENIB
     Indication: Metastatic neoplasm
     Dosage: UNK
     Route: 048
  2. MEKTOVI [Suspect]
     Active Substance: BINIMETINIB
     Indication: Metastatic neoplasm
     Dosage: UNK
     Route: 048

REACTIONS (7)
  - Rash [Unknown]
  - Urticaria [Unknown]
  - Pyrexia [Unknown]
  - Vomiting [Unknown]
  - Nausea [Unknown]
  - Fatigue [Unknown]
  - Dry skin [Unknown]
